FAERS Safety Report 8886271 (Version 2)
Quarter: 2012Q4

REPORT INFORMATION
  Report Type: 
  Country: NL (occurrence: NL)
  Receive Date: 20121105
  Receipt Date: 20121109
  Transmission Date: 20130627
  Serious: Yes (Other)
  Sender: FDA-Public Use
  Company Number: NL-ROCHE-1151466

PATIENT
  Age: 88 Year
  Sex: Female

DRUGS (2)
  1. ALTEPLASE [Suspect]
     Indication: RETINAL HAEMORRHAGE
     Route: 065
  2. SULFUR HEXAFLUORIDE [Suspect]
     Indication: RETINAL HAEMORRHAGE
     Dosage: Daily dose: 15 percent hexafluoride
     Route: 065

REACTIONS (2)
  - Hyphaema [Unknown]
  - Vitreous haemorrhage [Unknown]
